FAERS Safety Report 10767016 (Version 4)
Quarter: 2016Q3

REPORT INFORMATION
  Report Type: Spontaneous
  Country: US (occurrence: US)
  Receive Date: 20150205
  Receipt Date: 20160909
  Transmission Date: 20161109
  Serious: Yes (Hospitalization, Other)
  Sender: FDA-Public Use
  Company Number: US-ABBVIE-15P-163-1341695-00

PATIENT
  Age: 49 Year
  Sex: Male

DRUGS (1)
  1. ANDROGEL [Suspect]
     Active Substance: TESTOSTERONE
     Indication: BLOOD TESTOSTERONE DECREASED
     Route: 062
     Dates: start: 20100505, end: 20100709

REACTIONS (9)
  - Economic problem [Unknown]
  - Anxiety [Unknown]
  - Emotional disorder [Unknown]
  - Pain [Unknown]
  - Emotional distress [Unknown]
  - Physical disability [Unknown]
  - Injury [Unknown]
  - Myocardial infarction [Unknown]
  - Impaired work ability [Unknown]

NARRATIVE: CASE EVENT DATE: 20100709
